FAERS Safety Report 13774208 (Version 4)
Quarter: 2017Q3

REPORT INFORMATION
  Report Type: Report from Study
  Country: US (occurrence: US)
  Receive Date: 20170720
  Receipt Date: 20170911
  Transmission Date: 20171127
  Serious: Yes (Death, Hospitalization, Other)
  Sender: FDA-Public Use
  Company Number: PHHO2017US010308

PATIENT
  Age: 42 Year
  Sex: Female
  Weight: 92.43 kg

DRUGS (3)
  1. PLACEBO [Suspect]
     Active Substance: UNSPECIFIED INGREDIENT
     Indication: PSORIATIC ARTHROPATHY
     Dosage: CODE NOT BROKEN
     Route: 058
     Dates: start: 20170420, end: 20170614
  2. METHOTREXATE. [Suspect]
     Active Substance: METHOTREXATE
     Indication: PSORIATIC ARTHROPATHY
     Dosage: 15 MG, QW
     Route: 048
     Dates: start: 20161018, end: 201706
  3. PREDNISONE. [Suspect]
     Active Substance: PREDNISONE
     Indication: PSORIATIC ARTHROPATHY
     Dosage: 10 MG, QD
     Route: 048
     Dates: start: 20061101, end: 201706

REACTIONS (2)
  - Cardiac arrest [Fatal]
  - Atypical pneumonia [Fatal]

NARRATIVE: CASE EVENT DATE: 20170703
